FAERS Safety Report 5085734-0 (Version None)
Quarter: 2006Q3

REPORT INFORMATION
  Report Type: 
  Country: None (occurrence: None)
  Receive Date: 20060817
  Receipt Date: 20060808
  Transmission Date: 20061208
  Serious: Yes (Other)
  Sender: FDA-Public Use
  Company Number: 2006066576

PATIENT
  Age: 49 Year
  Sex: Male
  Weight: 106.5953 kg

DRUGS (5)
  1. GEODON [Suspect]
     Indication: COGNITIVE DISORDER
     Dosage: 40 MG (20 MG, 2 IN 1 D)
     Dates: end: 20040101
  2. ANTI-DIABETICS (ANTI-DIABETICS) [Suspect]
     Indication: DIABETES MELLITUS
  3. ATIVAN [Concomitant]
  4. PROZAC [Concomitant]
  5. COGENTIN [Concomitant]

REACTIONS (11)
  - ABASIA [None]
  - COMA [None]
  - DIABETES MELLITUS [None]
  - MEDICATION TAMPERING [None]
  - PHARMACEUTICAL PRODUCT COMPLAINT [None]
  - PHARMACEUTICAL PRODUCT COUNTERFEIT [None]
  - POLLAKIURIA [None]
  - POOR QUALITY DRUG ADMINISTERED [None]
  - RETCHING [None]
  - UNEVALUABLE EVENT [None]
  - VOMITING [None]
